FAERS Safety Report 10219019 (Version 1)
Quarter: 2014Q2

REPORT INFORMATION
  Report Type: Spontaneous
  Country: US (occurrence: US)
  Receive Date: 20140605
  Receipt Date: 20140605
  Transmission Date: 20141212
  Serious: Yes (Hospitalization)
  Sender: FDA-Public Use
  Company Number: US-JNJFOC-20140600492

PATIENT
  Sex: Male

DRUGS (5)
  1. RISPERDAL [Suspect]
     Indication: PRODUCT USED FOR UNKNOWN INDICATION
     Route: 048
  2. TRAZODONE [Concomitant]
     Route: 065
  3. REMERON [Concomitant]
     Indication: SOMNOLENCE
     Dosage: 30 MG AS NECESSARY AT NIGHT
     Route: 065
  4. KLONOPIN [Concomitant]
     Route: 065
  5. ZYPREXA [Concomitant]
     Route: 065

REACTIONS (2)
  - Investigation [Unknown]
  - Drug ineffective [Unknown]
